FAERS Safety Report 6108513-1 (Version None)
Quarter: 2009Q1

REPORT INFORMATION
  Report Type: 
  Country: None (occurrence: None)
  Receive Date: 20090309
  Receipt Date: 20090225
  Transmission Date: 20090719
  Serious: Yes (Death, Hospitalization, Other)
  Sender: FDA-Public Use
  Company Number: GB-PFIZER INC-2007004321

PATIENT
  Age: 69 Year
  Sex: Male
  Weight: 69.8 kg

DRUGS (4)
  1. ZAVEDOS [Suspect]
     Indication: MULTIPLE MYELOMA
     Dosage: 70 MG; TDD:40 MG/M2 ,1 IN 1 DAY
     Route: 048
     Dates: start: 20061227, end: 20061230
  2. DEXAMETHASONE [Concomitant]
     Indication: MULTIPLE MYELOMA
     Route: 048
     Dates: start: 20061220, end: 20061224
  3. ALLOPURINOL [Concomitant]
     Indication: HYPERURICAEMIA
     Route: 048
  4. CYCLIZINE [Concomitant]
     Indication: NAUSEA
     Route: 048

REACTIONS (9)
  - BONE MARROW FAILURE [None]
  - CARDIAC DISORDER [None]
  - COUGH [None]
  - DYSPNOEA [None]
  - MALAISE [None]
  - MUCOSAL INFLAMMATION [None]
  - NEUTROPENIC SEPSIS [None]
  - OVERDOSE [None]
  - WHITE BLOOD CELL COUNT DECREASED [None]
